FAERS Safety Report 13144525 (Version 2)
Quarter: 2017Q1

REPORT INFORMATION
  Report Type: Report from Study
  Country: CA (occurrence: CA)
  Receive Date: 20170124
  Receipt Date: 20170220
  Transmission Date: 20170428
  Serious: Yes (Other)
  Sender: FDA-Public Use
  Company Number: CA-AMGEN-CANSL2017009209

PATIENT
  Age: 69 Year
  Sex: Female

DRUGS (2)
  1. LYRICA [Suspect]
     Active Substance: PREGABALIN
     Indication: PRODUCT USED FOR UNKNOWN INDICATION
     Dosage: UNK
     Route: 065
     Dates: start: 201701
  2. REPATHA [Suspect]
     Active Substance: EVOLOCUMAB
     Indication: TYPE IIA HYPERLIPIDAEMIA
     Dosage: 140 MG/ML, UNK
     Route: 065
     Dates: start: 20170105

REACTIONS (11)
  - Palpitations [Unknown]
  - Eye pain [Unknown]
  - Headache [Unknown]
  - Weight increased [Unknown]
  - Angina pectoris [Unknown]
  - Chills [Unknown]
  - Dyspnoea [Unknown]
  - Nausea [Unknown]
  - Hot flush [Unknown]
  - Hyperhidrosis [Unknown]
  - Feeling of body temperature change [Unknown]

NARRATIVE: CASE EVENT DATE: 201701
